FAERS Safety Report 25715693 (Version 1)
Quarter: 2025Q3

REPORT INFORMATION
  Report Type: Report from Study
  Country: BY (occurrence: BY)
  Receive Date: 20250822
  Receipt Date: 20250822
  Transmission Date: 20251021
  Serious: Yes (Death)
  Sender: MYLAN
  Company Number: BY-MYLANLABS-2025M1071743

PATIENT
  Age: 70 Year
  Sex: Male
  Weight: 54 kg

DRUGS (6)
  1. PRETOMANID [Suspect]
     Active Substance: PRETOMANID
     Indication: Tuberculosis
     Dosage: 200 MILLIGRAM, QD (200 MG OD PO)
     Dates: start: 20230815, end: 20240129
  2. BEDAQUILINE [Suspect]
     Active Substance: BEDAQUILINE
     Indication: Tuberculosis
     Dosage: 400 MILLIGRAM, QD (400 MG OD FOR 2 WEEKS)
     Dates: start: 20230815
  3. BEDAQUILINE [Suspect]
     Active Substance: BEDAQUILINE
     Dosage: 200 MILLIGRAM, 3XW (THEN 200 MG TIW PO)
     Dates: end: 20240129
  4. LINEZOLID [Suspect]
     Active Substance: LINEZOLID
     Indication: Tuberculosis
     Dosage: 600 MILLIGRAM, QD (600 MG OD PO)
     Dates: start: 20230815, end: 20240129
  5. MOXIFLOXACIN [Suspect]
     Active Substance: MOXIFLOXACIN
     Indication: Tuberculosis
     Dosage: 400 MILLIGRAM, QD (400 MG OD PO)
     Dates: start: 20230815, end: 20240129
  6. Aspicard [Concomitant]
     Indication: Cerebrovascular accident prophylaxis
     Dosage: 75 MILLIGRAM, QD (75 MG DAILY ORALLY)
     Dates: start: 20230815

REACTIONS (1)
  - Cerebrovascular accident [Fatal]

NARRATIVE: CASE EVENT DATE: 20240416
